FAERS Safety Report 8913412 (Version 1)
Quarter: 2012Q4

REPORT INFORMATION
  Report Type: 
  Country: US (occurrence: US)
  Receive Date: 20121119
  Receipt Date: 20121119
  Transmission Date: 20130627
  Serious: No
  Sender: FDA-Public Use
  Company Number: US-PFIZER INC-2012281770

PATIENT
  Age: 56 Year
  Sex: Female

DRUGS (1)
  1. GEODON [Suspect]
     Indication: BIPOLAR DISORDER
     Dosage: 80 mg, 2x/day (T PO BID)
     Route: 048

REACTIONS (2)
  - Frustration [Unknown]
  - Anger [Unknown]
